APPROVED DRUG PRODUCT: GAVRETO
Active Ingredient: PRALSETINIB
Strength: 100MG
Dosage Form/Route: CAPSULE;ORAL
Application: N213721 | Product #001
Applicant: RIGEL PHARMACEUTICALS INC
Approved: Sep 4, 2020 | RLD: Yes | RS: Yes | Type: RX

PATENTS:
Patent 10030005 | Expires: Nov 1, 2036
Patent 10030005 | Expires: Nov 1, 2036
Patent 11273160 | Expires: Apr 3, 2039
Patent 11872192 | Expires: Apr 3, 2039
Patent 11963958 | Expires: Apr 3, 2039

EXCLUSIVITY:
Code: ODE-318 | Date: Sep 4, 2027
Code: ODE-340 | Date: Dec 1, 2027
Code: ODE-341 | Date: Dec 1, 2027